FAERS Safety Report 10196686 (Version 2)
Quarter: 2014Q2

REPORT INFORMATION
  Report Type: Spontaneous
  Country: US (occurrence: US)
  Receive Date: 20140527
  Receipt Date: 20140612
  Transmission Date: 20141212
  Serious: No
  Sender: FDA-Public Use
  Company Number: US-009507513-1405USA006181

PATIENT
  Age: 44 Year
  Sex: Male

DRUGS (1)
  1. PROPECIA [Suspect]
     Indication: ALOPECIA
     Dosage: 1 MG, DAILY
     Route: 048
     Dates: start: 201403, end: 20140505

REACTIONS (4)
  - Tinnitus [Recovering/Resolving]
  - Head discomfort [Unknown]
  - Sleep disorder [Unknown]
  - Adverse event [Unknown]
